FAERS Safety Report 5421835-2 (Version None)
Quarter: 2007Q3

REPORT INFORMATION
  Report Type: 
  Country: None (occurrence: None)
  Receive Date: 20070820
  Receipt Date: 20070816
  Transmission Date: 20080115
  Serious: Yes (Hospitalization, Other)
  Sender: FDA-Public Use
  Company Number: 016657

PATIENT
  Age: 32 Year
  Sex: Female
  Weight: 62.9 kg

DRUGS (1)
  1. DIAMOX [Suspect]
     Indication: DIURETIC THERAPY
     Dosage: 500 MG, SINGLE, ORAL
     Route: 048
     Dates: start: 20070708, end: 20070708

REACTIONS (2)
  - CHOLECYSTITIS CHRONIC [None]
  - CHOLELITHIASIS [None]
